FAERS Safety Report 5456661-1 (Version None)
Quarter: 2007Q3

REPORT INFORMATION
  Report Type: 
  Country: None (occurrence: None)
  Receive Date: 20070918
  Receipt Date: 20070330
  Transmission Date: 20080115
  Serious: Yes (Other)
  Sender: FDA-Public Use
  Company Number: US-ASTRAZENECA-2006UW25526

PATIENT
  Age: 34 Year
  Sex: Male
  Weight: 113.6 kg

DRUGS (7)
  1. SEROQUEL [Suspect]
     Indication: SCHIZOPHRENIA
     Route: 048
     Dates: start: 20030101, end: 20051001
  2. SEROQUEL [Suspect]
     Indication: ATTENTION DEFICIT/HYPERACTIVITY DISORDER
     Route: 048
     Dates: start: 20030101, end: 20051001
  3. RISPERDAL [Suspect]
     Dates: start: 20030101
  4. ZYPREXA [Suspect]
     Dates: start: 20040101
  5. MELARIL [Concomitant]
  6. RITALIN [Concomitant]
  7. TRAZODONE HCL [Concomitant]

REACTIONS (5)
  - DEPRESSION [None]
  - DIABETES MELLITUS [None]
  - EXTRAPYRAMIDAL DISORDER [None]
  - HYPERPROLACTINAEMIA [None]
  - TARDIVE DYSKINESIA [None]
